FAERS Safety Report 10589511 (Version 1)
Quarter: 2014Q4

REPORT INFORMATION
  Report Type: Spontaneous
  Country: IN (occurrence: None)
  Receive Date: 20141114
  Receipt Date: 20141114
  Transmission Date: 20150529
  Serious: Yes (Life-Threatening)
  Sender: FDA-Public Use
  Company Number: IPC201411-000607

PATIENT
  Age: 35 Year
  Sex: Female

DRUGS (2)
  1. ATENOLOL (ATENOLOL) (ATENOLOL) [Suspect]
     Active Substance: ATENOLOL
     Dosage: 100 TABLETS OF 50 MG, ORAL
     Route: 048
  2. AMLODIPINE BESILATE (AMLODIPINE BESILATE) (AMLODIPINE BESILATE) [Suspect]
     Active Substance: AMLODIPINE BESYLATE
     Dosage: 100 TABLETS OF 10 MG, ORAL
     Route: 048

REACTIONS (11)
  - Respiratory rate increased [None]
  - Tachypnoea [None]
  - Hypotension [None]
  - Intentional overdose [None]
  - Suicide attempt [None]
  - Tachycardia [None]
  - Metabolic acidosis [None]
  - Body temperature decreased [None]
  - Atrioventricular block second degree [None]
  - Anuria [None]
  - Depressed level of consciousness [None]
